FAERS Safety Report 7023634-7 (Version None)
Quarter: 2010Q3

REPORT INFORMATION
  Report Type: 
  Country: None (occurrence: None)
  Receive Date: 20100930
  Receipt Date: 20100930
  Transmission Date: 20110219
  Serious: Yes (Hospitalization)
  Sender: FDA-Public Use
  Company Number: None

PATIENT
  Age: 64 Year
  Sex: Male
  Weight: 98 kg

DRUGS (1)
  1. IMMUNE GLOBULIN NOS [Suspect]
     Dates: start: 20100830

REACTIONS (2)
  - NAUSEA [None]
  - VOMITING [None]
